FAERS Safety Report 9543343 (Version 1)
Quarter: 2013Q3

REPORT INFORMATION
  Report Type: Spontaneous
  Country: CH (occurrence: CH)
  Receive Date: 20130923
  Receipt Date: 20130923
  Transmission Date: 20140515
  Serious: Yes (Hospitalization, Other)
  Sender: FDA-Public Use
  Company Number: CH-ROXANE LABORATORIES, INC.-2013-RO-01542RO

PATIENT
  Age: 1 Year
  Sex: Male

DRUGS (3)
  1. DEXAMETHASONE [Suspect]
     Indication: ADRENOGENITAL SYNDROME
     Route: 064
  2. FLUDROCORTISONE [Suspect]
     Indication: ADRENOGENITAL SYNDROME
  3. HYDROCORTISONE [Suspect]
     Indication: ADRENOGENITAL SYNDROME

REACTIONS (7)
  - Encephalopathy [Recovered/Resolved with Sequelae]
  - Central nervous system lesion [Recovered/Resolved with Sequelae]
  - Ischaemic stroke [Recovered/Resolved with Sequelae]
  - Hypoglycaemia [Unknown]
  - Hemianopia [Unknown]
  - Hemiparesis [Unknown]
  - Hyperreflexia [Unknown]
